FAERS Safety Report 4646714-X (Version None)
Quarter: 2005Q2

REPORT INFORMATION
  Report Type: 
  Country: None (occurrence: None)
  Receive Date: 20050427
  Receipt Date: 20050425
  Transmission Date: 20051028
  Serious: Yes (Hospitalization)
  Sender: FDA-Public Use
  Company Number: CHROB-S-20050003

PATIENT
  Age: 28 Year
  Sex: Female

DRUGS (1)
  1. NAVELBINE [Suspect]
     Indication: ILL-DEFINED DISORDER
     Dosage: 65MG PER DAY
     Route: 042
     Dates: start: 20050322, end: 20050322

REACTIONS (4)
  - ABDOMINAL PAIN [None]
  - CONSTIPATION [None]
  - ILEUS PARALYTIC [None]
  - INTESTINAL FUNCTIONAL DISORDER [None]
